FAERS Safety Report 20223827 (Version 1)
Quarter: 2021Q4

REPORT INFORMATION
  Report Type: Spontaneous
  Country: US (occurrence: None)
  Receive Date: 20211223
  Receipt Date: 20211223
  Transmission Date: 20220303
  Serious: No
  Sender: FDA-Public Use
  Company Number: None

PATIENT
  Sex: Female
  Weight: 68.04 kg

DRUGS (7)
  1. IBRANCE [Suspect]
     Active Substance: PALBOCICLIB
     Indication: Breast cancer female
     Dosage: OTHER FREQUENCY : QD 21 DAYS;?
     Route: 048
  2. CALCIUM\CHOLECALCIFEROL [Concomitant]
     Active Substance: CALCIUM\CHOLECALCIFEROL
  3. CRESTOR [Concomitant]
     Active Substance: ROSUVASTATIN CALCIUM
  4. KRIL OIL [Concomitant]
  5. NAPROXEN [Concomitant]
     Active Substance: NAPROXEN
  6. TRAMADOL [Concomitant]
     Active Substance: TRAMADOL
  7. VALSARTAN-HYPDROCHLOROTHIAZIDE [Concomitant]

REACTIONS (2)
  - Haemoglobin decreased [None]
  - Therapy interrupted [None]
